FAERS Safety Report 8244963-5 (Version None)
Quarter: 2012Q1

REPORT INFORMATION
  Report Type: 
  Country: None (occurrence: None)
  Receive Date: 20120329
  Receipt Date: 20111024
  Transmission Date: 20120608
  Serious: No
  Sender: FDA-Public Use
  Company Number: US-MYLANLABS-2011S1022076

PATIENT
  Age: 51 Year
  Sex: Male
  Weight: 80.74 kg

DRUGS (6)
  1. VALIUM [Concomitant]
     Indication: ANXIETY
  2. SOMA [Concomitant]
     Indication: PAIN
  3. FENTANYL-100 [Suspect]
     Indication: NECK PAIN
     Dosage: CHANGES Q. 48 HOURS.
     Route: 062
     Dates: start: 20110801
  4. ASPIRIN [Concomitant]
  5. OXYCODONE HCL [Concomitant]
     Indication: BREAKTHROUGH PAIN
  6. GABAPENTIN [Concomitant]
     Indication: NEURALGIA

REACTIONS (2)
  - DYSARTHRIA [None]
  - SOMNOLENCE [None]
